FAERS Safety Report 7656856-2 (Version None)
Quarter: 2011Q3

REPORT INFORMATION
  Report Type: 
  Country: None (occurrence: None)
  Receive Date: 20110802
  Receipt Date: 20110719
  Transmission Date: 20111222
  Serious: Yes (Life-Threatening, Hospitalization)
  Sender: FDA-Public Use
  Company Number: 1000022004

PATIENT
  Age: 26 Year
  Sex: Male
  Weight: 85 kg

DRUGS (3)
  1. BROMAZEPAM - TABLET (BROMAZEPAM) (TABLETS) [Suspect]
     Indication: SUICIDE ATTEMPT
     Dosage: OVERDOSE: 15 TABLETS AT ONCE (15 DOSAGE FORMS, ONCE)
     Dates: start: 20110525, end: 20110525
  2. RISPERIDONE [Suspect]
     Indication: SUICIDE ATTEMPT
     Dosage: OVERDOSE: 30 TABLETS AT ONCE (30 DOSAGE FORMS, ONCE)
     Dates: start: 20110525, end: 20110525
  3. ESCITALOPRAM OXALATE [Suspect]
     Indication: SUICIDE ATTEMPT
     Dosage: OVERDOSE : 14 TABLETS AT ONCE (14 DOSAGE FORMS, ONCE)
     Dates: start: 20110525, end: 20110525

REACTIONS (2)
  - SUICIDE ATTEMPT [None]
  - SOPOR [None]
